FAERS Safety Report 21678377 (Version 1)
Quarter: 2022Q4

REPORT INFORMATION
  Report Type: Spontaneous
  Country: FR (occurrence: FR)
  Receive Date: 20221203
  Receipt Date: 20221203
  Transmission Date: 20230112
  Serious: Yes (Other)
  Sender: FDA-Public Use
  Company Number: None

PATIENT
  Age: 30 Year
  Sex: Female
  Weight: 58 kg

DRUGS (1)
  1. COPAXONE [Suspect]
     Active Substance: GLATIRAMER ACETATE
     Indication: Relapsing-remitting multiple sclerosis
     Dosage: FORM STRENGTH : 40 MG/ML, UNIT DOSE : 120 MG, FREQUENCY TIME : 1 WEEKS, DURATION : 3 MONTHS
     Route: 065
     Dates: start: 20220505, end: 202208

REACTIONS (4)
  - Palpitations [Recovered/Resolved]
  - Arthralgia [Recovered/Resolved]
  - Suffocation feeling [Recovered/Resolved]
  - Feeling hot [Recovered/Resolved]

NARRATIVE: CASE EVENT DATE: 20220601
